FAERS Safety Report 6747517-2 (Version None)
Quarter: 2010Q2

REPORT INFORMATION
  Report Type: 
  Country: None (occurrence: None)
  Receive Date: 20100528
  Receipt Date: 20100524
  Transmission Date: 20101027
  Serious: Yes (Hospitalization)
  Sender: FDA-Public Use
  Company Number: CN-SANOFI-AVENTIS-F01200900183

PATIENT
  Age: 51 Year
  Sex: Male
  Weight: 80 kg

DRUGS (6)
  1. OXALIPLATIN [Suspect]
     Dosage: UNIT DOSE: 130 MG/M2
     Route: 041
     Dates: start: 20090202, end: 20090202
  2. CAPECITABINE [Suspect]
     Dosage: DOSE TEXT: DAYS 1-15 (2 WEEKS ON TREATMENT, 1 WEEK REST)UNIT DOSE: 1000 MG/M2
     Route: 048
     Dates: start: 20090202, end: 20090208
  3. METOCLOPRAMIDE [Concomitant]
     Route: 065
     Dates: start: 20090202, end: 20090202
  4. TROPISETRON [Concomitant]
     Route: 065
     Dates: start: 20090202, end: 20090202
  5. DEXAMETHASONE [Concomitant]
     Route: 065
     Dates: start: 20090202, end: 20090202
  6. DIAZEPAM [Concomitant]
     Route: 065
     Dates: start: 20090202, end: 20090202

REACTIONS (2)
  - CHOLECYSTITIS ACUTE [None]
  - INTESTINAL OBSTRUCTION [None]
